FAERS Safety Report 6339468-2 (Version None)
Quarter: 2009Q3

REPORT INFORMATION
  Report Type: 
  Country: None (occurrence: None)
  Receive Date: 20090903
  Receipt Date: 20090826
  Transmission Date: 20100115
  Serious: Yes (Hospitalization)
  Sender: FDA-Public Use
  Company Number: JP-JNJFOC-20090102526

PATIENT
  Sex: Female
  Weight: 53 kg

DRUGS (5)
  1. REMICADE [Suspect]
     Dosage: 25 MG
     Route: 042
  2. REMICADE [Suspect]
     Dosage: 250 MG
     Route: 042
  3. REMICADE [Suspect]
     Indication: CROHN'S DISEASE
     Dosage: 250MG
     Route: 042
  4. METRONIDAZOLE [Concomitant]
     Route: 048
  5. 5-AMINOSALICYLIC ACID [Concomitant]

REACTIONS (1)
  - APPENDICITIS [None]
